FAERS Safety Report 7717286-8 (Version None)
Quarter: 2011Q3

REPORT INFORMATION
  Report Type: 
  Country: None (occurrence: None)
  Receive Date: 20110826
  Receipt Date: 20110826
  Transmission Date: 20111222
  Serious: Yes (Other)
  Sender: FDA-Public Use
  Company Number: None

PATIENT
  Sex: Male
  Weight: 146.9654 kg

DRUGS (2)
  1. COUMADIN [Suspect]
     Indication: MYOCARDITIS
     Dosage: 6 MG DAILY ORAL
     Route: 048
  2. COUMADIN [Suspect]
     Indication: HYPERCOAGULATION
     Dosage: 6 MG DAILY ORAL
     Route: 048

REACTIONS (1)
  - INTERNATIONAL NORMALISED RATIO INCREASED [None]
